FAERS Safety Report 9153998 (Version 1)
Quarter: 2013Q1

REPORT INFORMATION
  Report Type: Spontaneous
  Country: US (occurrence: None)
  Receive Date: 20130308
  Receipt Date: 20130308
  Transmission Date: 20140127
  Serious: No
  Sender: FDA-Public Use
  Company Number: None

PATIENT
  Age: 43 Year
  Sex: Male
  Weight: 99.79 kg

DRUGS (1)
  1. XARELTO [Suspect]
     Indication: PULMONARY THROMBOSIS
     Route: 048

REACTIONS (9)
  - Nasopharyngitis [None]
  - Chest discomfort [None]
  - Chest discomfort [None]
  - Asthenia [None]
  - Cough [None]
  - Hunger [None]
  - Chills [None]
  - Feeling of body temperature change [None]
  - Hot flush [None]
